FAERS Safety Report 9788295 (Version 1)
Quarter: 2013Q4

REPORT INFORMATION
  Report Type: Spontaneous
  Country: FR (occurrence: FR)
  Receive Date: 20131230
  Receipt Date: 20131230
  Transmission Date: 20140711
  Serious: Yes (Hospitalization)
  Sender: FDA-Public Use
  Company Number: FR-009507513-1312FRA009422

PATIENT
  Age: 53 Year
  Sex: Male

DRUGS (6)
  1. STROMECTOL [Suspect]
     Indication: INFESTATION
     Dosage: UNK
     Route: 048
     Dates: start: 20130711, end: 20130711
  2. BACTRIM FORTE [Suspect]
     Dosage: 800 MG, TID
     Route: 048
     Dates: start: 20130711, end: 20130722
  3. BACTRIM ADULTE [Suspect]
     Dosage: 400 MG, TID
     Route: 048
     Dates: start: 20130711, end: 20130722
  4. DOXYCYCLINE [Suspect]
     Indication: ACNE
     Dosage: UNK
     Dates: start: 20130625, end: 201307
  5. LEDERFOLINE [Suspect]
     Dosage: 5 MG, QD
     Route: 048
     Dates: start: 20130711, end: 20130723
  6. AERIUS [Suspect]
     Dosage: 5 MG, QD
     Route: 048
     Dates: start: 20130704, end: 20130714

REACTIONS (8)
  - Toxic epidermal necrolysis [Recovered/Resolved]
  - Hepatocellular injury [Recovered/Resolved]
  - Renal failure acute [None]
  - Hallucination, visual [None]
  - Staphylococcal infection [None]
  - Klebsiella test positive [None]
  - Staphylococcus test positive [None]
  - Enterobacter test positive [None]
